FAERS Safety Report 5124875-6 (Version None)
Quarter: 2006Q4

REPORT INFORMATION
  Report Type: 
  Country: None (occurrence: None)
  Receive Date: 20061011
  Receipt Date: 20060810
  Transmission Date: 20070319
  Serious: Yes (Other)
  Sender: FDA-Public Use
  Company Number: 2006AP03793

PATIENT
  Age: 18005 Day
  Sex: Female
  Weight: 52.5 kg

DRUGS (4)
  1. IRESSA [Suspect]
     Indication: NON-SMALL CELL LUNG CANCER
     Route: 048
     Dates: start: 20060711, end: 20060807
  2. PARAPLATIN [Concomitant]
     Indication: LUNG ADENOCARCINOMA
     Route: 042
     Dates: start: 20060303, end: 20060907
  3. GEMZAR [Concomitant]
     Indication: LUNG ADENOCARCINOMA
     Route: 042
     Dates: start: 20060405
  4. TAXOL [Concomitant]

REACTIONS (4)
  - ANAPHYLACTIC SHOCK [None]
  - HEPATIC FUNCTION ABNORMAL [None]
  - PYREXIA [None]
  - RASH [None]
